FAERS Safety Report 15351580 (Version 1)
Quarter: 2018Q3

REPORT INFORMATION
  Report Type: Spontaneous
  Country: US (occurrence: US)
  Receive Date: 20180829
  Receipt Date: 20180829
  Transmission Date: 20181010
  Serious: Yes (Hospitalization)
  Sender: FDA-Public Use
  Company Number: None

PATIENT
  Age: 45 Year
  Sex: Female
  Weight: 113.67 kg

DRUGS (1)
  1. ZEPATIER [Suspect]
     Active Substance: ELBASVIR\GRAZOPREVIR
     Indication: HEPATITIS C
     Route: 048
     Dates: start: 20170120, end: 20170414

REACTIONS (4)
  - Leukocytosis [None]
  - Abdominal pain upper [None]
  - Perforated ulcer [None]
  - Pneumoperitoneum [None]

NARRATIVE: CASE EVENT DATE: 20170123
